FAERS Safety Report 7782923-9 (Version None)
Quarter: 2011Q3

REPORT INFORMATION
  Report Type: 
  Country: None (occurrence: None)
  Receive Date: 20110927
  Receipt Date: 20110927
  Transmission Date: 20111222
  Serious: Yes (Hospitalization)
  Sender: FDA-Public Use
  Company Number: None

PATIENT
  Sex: Female
  Weight: 110.7 kg

DRUGS (13)
  1. FENTANYL [Concomitant]
  2. MAGNESIUM OXIDE [Concomitant]
  3. HYDROCODONE BITARTRATE AND ACETAMINOPHEN [Concomitant]
  4. SENNA-MINT WAF [Concomitant]
  5. CISPLATIN [Suspect]
     Dosage: 314 MG
     Dates: end: 20070829
  6. LEXAPRO [Concomitant]
  7. ULCEREASE [Concomitant]
  8. ONDANSETRON HCI [Concomitant]
  9. XYLOXYLIN [Concomitant]
  10. MICARDIS HCT [Concomitant]
  11. PROCHLORPERAZINE [Concomitant]
  12. ESTROGEN CREAM [Concomitant]
  13. PREVACID [Concomitant]

REACTIONS (9)
  - PYREXIA [None]
  - COUGH [None]
  - PAIN [None]
  - BLOOD MAGNESIUM DECREASED [None]
  - DERMATITIS [None]
  - ORAL DISCHARGE [None]
  - ENTEROCOCCUS TEST POSITIVE [None]
  - ESCHERICHIA TEST POSITIVE [None]
  - ANAEMIA [None]
